FAERS Safety Report 5047005-8 (Version None)
Quarter: 2006Q2

REPORT INFORMATION
  Report Type: 
  Country: None (occurrence: None)
  Receive Date: 20060630
  Receipt Date: 20060619
  Transmission Date: 20061013
  Serious: No
  Sender: FDA-Public Use
  Company Number: E2090-00027-SPO-DE

PATIENT
  Age: 42 Year
  Sex: Male
  Weight: 98 kg

DRUGS (5)
  1. ZONEGRAN [Suspect]
     Indication: PARTIAL SEIZURES
     Dosage: SEE IMAGE
     Route: 048
     Dates: start: 20060223, end: 20060101
  2. ZONEGRAN [Suspect]
     Indication: PARTIAL SEIZURES
     Dosage: SEE IMAGE
     Route: 048
     Dates: start: 20060101
  3. TOPIRAMATE [Suspect]
     Indication: PARTIAL SEIZURES
     Dosage: 400 MG, ORAL
     Route: 048
  4. PHENYTOIN [Concomitant]
  5. LORAZEPAM [Concomitant]

REACTIONS (4)
  - ANXIETY [None]
  - PARTIAL SEIZURES [None]
  - PERSECUTORY DELUSION [None]
  - PSYCHOTIC DISORDER [None]
